FAERS Safety Report 25720703 (Version 1)
Quarter: 2025Q3

REPORT INFORMATION
  Report Type: Spontaneous
  Country: US (occurrence: US)
  Receive Date: 20250825
  Receipt Date: 20250825
  Transmission Date: 20251020
  Serious: No
  Sender: EMD SERONO INC
  Company Number: US-Merck Healthcare KGaA-2025041964

PATIENT
  Sex: Female

DRUGS (2)
  1. CLADRIBINE [Suspect]
     Active Substance: CLADRIBINE
     Indication: Multiple sclerosis
  2. CLADRIBINE [Suspect]
     Active Substance: CLADRIBINE

REACTIONS (1)
  - Multiple sclerosis relapse [Unknown]
